FAERS Safety Report 7229246-4 (Version None)
Quarter: 2011Q1

REPORT INFORMATION
  Report Type: 
  Country: None (occurrence: None)
  Receive Date: 20110117
  Receipt Date: 20110113
  Transmission Date: 20110831
  Serious: Yes (Hospitalization)
  Sender: FDA-Public Use
  Company Number: DE-AMGEN-DEUSP2011000866

PATIENT

DRUGS (5)
  1. NEUPOGEN [Suspect]
     Indication: CHEMOTHERAPY
     Dosage: UNK
  2. DOXORUBICIN [Concomitant]
     Indication: BREAST CANCER
     Dosage: 94 MG, Q3WK
     Dates: start: 20101210, end: 20101230
  3. NEULASTA [Suspect]
     Indication: CHEMOTHERAPY
     Dosage: UNK
     Dates: start: 20101213, end: 20110103
  4. DOCETAXEL [Concomitant]
     Indication: BREAST CANCER
     Dosage: 140 MG, Q3WK
     Dates: start: 20101210, end: 20101230
  5. CYCLOPHOSPHAMIDE [Concomitant]
     Indication: BREAST CANCER
     Dosage: 945 MG, Q3WK
     Dates: start: 20101210, end: 20101230

REACTIONS (3)
  - SEPSIS [None]
  - PANCYTOPENIA [None]
  - FEBRILE NEUTROPENIA [None]
